FAERS Safety Report 15152755 (Version 1)
Quarter: 2018Q3

REPORT INFORMATION
  Report Type: Spontaneous
  Country: DE (occurrence: DE)
  Receive Date: 20180717
  Receipt Date: 20180717
  Transmission Date: 20181010
  Serious: Yes (Hospitalization)
  Sender: FDA-Public Use
  Company Number: DE-DRREDDYS-GER/GER/18/0101898

PATIENT
  Age: 60 Year
  Sex: Female

DRUGS (7)
  1. OLANZAPINE. [Suspect]
     Active Substance: OLANZAPINE
     Indication: PRODUCT USED FOR UNKNOWN INDICATION
     Dates: start: 20080923, end: 20080925
  2. OLANZAPINE. [Suspect]
     Active Substance: OLANZAPINE
     Dates: start: 20080919, end: 20080921
  3. TAXILAN [Concomitant]
     Indication: PRODUCT USED FOR UNKNOWN INDICATION
     Dates: start: 20081002
  4. OLANZAPINE. [Suspect]
     Active Substance: OLANZAPINE
     Dates: start: 20081002
  5. TAXILAN [Concomitant]
     Dates: start: 20081003
  6. OLANZAPINE. [Suspect]
     Active Substance: OLANZAPINE
     Dates: start: 20080922
  7. OLANZAPINE. [Suspect]
     Active Substance: OLANZAPINE
     Dates: start: 20080926, end: 20081001

REACTIONS (1)
  - Hepatic function abnormal [Recovering/Resolving]

NARRATIVE: CASE EVENT DATE: 20080919
